FAERS Safety Report 9369177 (Version 2)
Quarter: 2013Q3

REPORT INFORMATION
  Report Type: Report from Study
  Country: US (occurrence: US)
  Receive Date: 20130626
  Receipt Date: 20130716
  Transmission Date: 20140515
  Serious: Yes (Other)
  Sender: FDA-Public Use
  Company Number: PHEH2013US013587

PATIENT
  Sex: Female

DRUGS (2)
  1. TOBI [Suspect]
     Indication: CYSTIC FIBROSIS
     Dosage: 300 MG, TWICE DAILY 28 DAYS ON AND 28 DAYS OFF
     Dates: start: 20130227
  2. PULMOZYME [Concomitant]
     Dosage: UNK UKN, UNK

REACTIONS (1)
  - Convulsion [Not Recovered/Not Resolved]
